FAERS Safety Report 10266815 (Version 1)
Quarter: 2014Q2

REPORT INFORMATION
  Report Type: Spontaneous
  Country: NL (occurrence: NL)
  Receive Date: 20140630
  Receipt Date: 20140630
  Transmission Date: 20141212
  Serious: Yes (Death)
  Sender: FDA-Public Use
  Company Number: NL-AMGEN-NLDSP2011071764

PATIENT
  Age: 76 Year
  Sex: Male

DRUGS (2)
  1. ARANESP [Suspect]
     Indication: NEPHROGENIC ANAEMIA
     Dosage: 150 MUG, QWK
     Route: 058
     Dates: start: 20101223, end: 20111019
  2. ARANESP [Suspect]
     Indication: ANAEMIA

REACTIONS (1)
  - Death [Fatal]
